FAERS Safety Report 12754255 (Version 5)
Quarter: 2017Q3

REPORT INFORMATION
  Report Type: Spontaneous
  Country: US (occurrence: US)
  Receive Date: 20160916
  Receipt Date: 20170902
  Transmission Date: 20171127
  Serious: No
  Sender: FDA-Public Use
  Company Number: PHEH2016US022968

PATIENT
  Sex: Male

DRUGS (6)
  1. RITUXAN [Suspect]
     Active Substance: RITUXIMAB
     Indication: PRODUCT USED FOR UNKNOWN INDICATION
     Route: 065
  2. FARYDAK [Suspect]
     Active Substance: PANOBINOSTAT
     Dosage: UNK
     Route: 048
     Dates: start: 20170509
  3. FARYDAK [Suspect]
     Active Substance: PANOBINOSTAT
     Dosage: UNK
     Route: 048
     Dates: start: 20170614
  4. FARYDAK [Suspect]
     Active Substance: PANOBINOSTAT
     Indication: PLASMA CELL MYELOMA
     Dosage: 15 MG, ON DAY 1,3,5,15,17,19 AND Q 28
     Route: 048
     Dates: start: 20160808
  5. COUMADIN [Concomitant]
     Active Substance: WARFARIN SODIUM
     Indication: BLOOD VISCOSITY DECREASED
     Route: 065
  6. FARYDAK [Suspect]
     Active Substance: PANOBINOSTAT
     Dosage: UNK
     Route: 048
     Dates: start: 20170618

REACTIONS (7)
  - Platelet count decreased [Unknown]
  - Neuropathy peripheral [Unknown]
  - International normalised ratio fluctuation [Unknown]
  - Headache [Unknown]
  - Back pain [Unknown]
  - Blood count abnormal [Unknown]
  - Inappropriate schedule of drug administration [Unknown]
